FAERS Safety Report 7449996-4 (Version None)
Quarter: 2011Q2

REPORT INFORMATION
  Report Type: 
  Country: None (occurrence: None)
  Receive Date: 20110428
  Receipt Date: 20110428
  Transmission Date: 20111010
  Serious: Yes (Death, Hospitalization)
  Sender: FDA-Public Use
  Company Number: None

PATIENT
  Age: 74 Year
  Sex: Male
  Weight: 81.8 kg

DRUGS (1)
  1. PACLITAXEL [Suspect]
     Indication: PULMONARY FIBROSIS
     Dosage: 100 MG QWEEK SQ
     Route: 058
     Dates: start: 20101207, end: 20110111

REACTIONS (11)
  - COUGH [None]
  - HEPATIC LESION [None]
  - PNEUMONITIS [None]
  - FATIGUE [None]
  - PULMONARY FIBROSIS [None]
  - LYMPHANGIOSIS CARCINOMATOSA [None]
  - HYPOTENSION [None]
  - WHEEZING [None]
  - PLEURAL EFFUSION [None]
  - DYSPNOEA [None]
  - DISEASE PROGRESSION [None]
